FAERS Safety Report 7000740-4 (Version None)
Quarter: 2010Q3

REPORT INFORMATION
  Report Type: 
  Country: None (occurrence: None)
  Receive Date: 20100920
  Receipt Date: 20100712
  Transmission Date: 20110219
  Serious: No
  Sender: FDA-Public Use
  Company Number: US-ASTRAZENECA-2010SE32356

PATIENT
  Age: 27 Year
  Sex: Male

DRUGS (2)
  1. SEROQUEL XR [Suspect]
     Indication: ASPERGER'S DISORDER
     Route: 048
     Dates: start: 20100330
  2. TEGRETOL [Concomitant]

REACTIONS (4)
  - ABNORMAL DREAMS [None]
  - DIARRHOEA [None]
  - HYPERSOMNIA [None]
  - SOMNOLENCE [None]
